FAERS Safety Report 7656875-6 (Version None)
Quarter: 2011Q3

REPORT INFORMATION
  Report Type: 
  Country: None (occurrence: None)
  Receive Date: 20110804
  Receipt Date: 20110722
  Transmission Date: 20111222
  Serious: Yes (Hospitalization)
  Sender: FDA-Public Use
  Company Number: PL-SANOFI-AVENTIS-2011SA048219

PATIENT
  Age: 78 Year
  Sex: Male
  Weight: 96 kg

DRUGS (7)
  1. LOSARTAN POTASSIUM [Concomitant]
     Route: 065
  2. TAMSULOSIN HCL [Concomitant]
     Route: 065
  3. FUROSEMIDE [Concomitant]
     Route: 065
  4. ATORVASTATIN [Concomitant]
     Route: 065
  5. GLIQUIDONE [Concomitant]
     Route: 065
  6. ACENOCOUMAROL [Concomitant]
     Route: 065
  7. DRONEDARONE HCL [Suspect]
     Indication: ATRIAL FIBRILLATION
     Route: 048
     Dates: start: 20110201, end: 20110221

REACTIONS (1)
  - ISCHAEMIC STROKE [None]
